FAERS Safety Report 8990422 (Version 1)
Quarter: 2012Q4

REPORT INFORMATION
  Report Type: 
  Country: US (occurrence: US)
  Receive Date: 20121228
  Receipt Date: 20121228
  Transmission Date: 20130627
  Serious: Yes (Hospitalization)
  Sender: FDA-Public Use
  Company Number: US-FRI-1000041238

PATIENT
  Age: 13 Year
  Sex: Female

DRUGS (2)
  1. CELEXA [Suspect]
     Indication: DEPRESSION
     Dosage: 20mg
     Route: 048
     Dates: start: 2010
  2. CELEXA [Suspect]
     Indication: ANXIETY
     Dosage: 40mg
     Route: 048
     Dates: end: 20121128

REACTIONS (3)
  - Suicidal ideation [Recovering/Resolving]
  - Intentional self-injury [Recovering/Resolving]
  - Off label use [Recovering/Resolving]
